FAERS Safety Report 7900235-7 (Version None)
Quarter: 2011Q4

REPORT INFORMATION
  Report Type: 
  Country: None (occurrence: None)
  Receive Date: 20111108
  Receipt Date: 20111027
  Transmission Date: 20120403
  Serious: Yes (Hospitalization)
  Sender: FDA-Public Use
  Company Number: US-CELGENEUS-163-AB007-11103241

PATIENT
  Sex: Male
  Weight: 75.4 kg

DRUGS (9)
  1. GEMCITABINE [Suspect]
     Dosage: 1000 MILLIGRAM/SQ. METER
     Route: 041
     Dates: start: 20111026
  2. ABRAXANE [Suspect]
     Dosage: 125 MILLIGRAM/SQ. METER
     Route: 041
     Dates: start: 20111026
  3. FENTANYL [Concomitant]
     Dosage: 25 MICROGRAM
     Route: 062
     Dates: start: 20111025
  4. OXYCODONE HCL [Concomitant]
     Indication: PAIN
     Dosage: 15 MILLIGRAM
     Route: 048
     Dates: start: 20111021
  5. TRANDATE [Concomitant]
     Dosage: 200 MILLIGRAM
     Route: 048
     Dates: start: 20111004
  6. PROCHLORPERAZINE MALEATE [Concomitant]
     Indication: NAUSEA
     Dosage: 10 MILLIGRAM
     Route: 048
     Dates: start: 20111026
  7. PRAVACHOL [Concomitant]
     Dosage: 40 MILLIGRAM
     Route: 048
     Dates: start: 20111004
  8. LOTENSIN [Concomitant]
     Dosage: 40 MILLIGRAM
     Route: 048
     Dates: start: 20111004
  9. OXYCODONE HCL [Concomitant]
     Dosage: 5 MILLIGRAM
     Route: 048
     Dates: start: 20111004

REACTIONS (6)
  - DIZZINESS POSTURAL [None]
  - URINARY INCONTINENCE [None]
  - WHEEZING [None]
  - BLOOD PRESSURE SYSTOLIC INCREASED [None]
  - PLEURAL EFFUSION [None]
  - OXYGEN SATURATION DECREASED [None]
